FAERS Safety Report 23959701 (Version 5)
Quarter: 2025Q3

REPORT INFORMATION
  Report Type: Report from Study
  Country: US (occurrence: US)
  Receive Date: 20240611
  Receipt Date: 20250811
  Transmission Date: 20251021
  Serious: No
  Sender: TAKEDA
  Company Number: US-TAKEDA-2024TUS047605

PATIENT
  Age: 64 Year
  Sex: Female
  Weight: 81 kg

DRUGS (23)
  1. HUMAN IMMUNOGLOBULIN G [Suspect]
     Active Substance: HUMAN IMMUNOGLOBULIN G
     Indication: Myasthenia gravis
  2. HUMAN IMMUNOGLOBULIN G [Suspect]
     Active Substance: HUMAN IMMUNOGLOBULIN G
  3. HUMAN IMMUNOGLOBULIN G [Suspect]
     Active Substance: HUMAN IMMUNOGLOBULIN G
  4. SODIUM CHLORIDE [Concomitant]
     Active Substance: SODIUM CHLORIDE
  5. ACETAMINOPHEN [Concomitant]
     Active Substance: ACETAMINOPHEN
  6. ROSUVASTATIN CALCIUM [Concomitant]
     Active Substance: ROSUVASTATIN CALCIUM
  7. EPINEPHRINE [Concomitant]
     Active Substance: EPINEPHRINE
  8. SODIUM CHLORIDE [Concomitant]
     Active Substance: SODIUM CHLORIDE
  9. VITAMIN D3 [Concomitant]
     Active Substance: CHOLECALCIFEROL
  10. SYNTHROID [Concomitant]
     Active Substance: LEVOTHYROXINE SODIUM
  11. LIDOCAINE [Concomitant]
     Active Substance: LIDOCAINE
  12. HEPARIN [Concomitant]
     Active Substance: HEPARIN SODIUM
  13. FAMOTIDINE [Concomitant]
     Active Substance: FAMOTIDINE
  14. MESTINON [Concomitant]
     Active Substance: PYRIDOSTIGMINE BROMIDE
  15. CALCITRIOL [Concomitant]
     Active Substance: CALCITRIOL
  16. ULTOMIRIS [Concomitant]
     Active Substance: RAVULIZUMAB-CWVZ
  17. CETIRIZINE [Concomitant]
     Active Substance: CETIRIZINE HYDROCHLORIDE
  18. AMLODIPINE BESYLATE [Concomitant]
     Active Substance: AMLODIPINE BESYLATE
  19. FOSAMAX [Concomitant]
     Active Substance: ALENDRONATE SODIUM
  20. JANUVIA [Concomitant]
     Active Substance: SITAGLIPTIN PHOSPHATE
  21. PREDNISONE [Concomitant]
     Active Substance: PREDNISONE
  22. DIPHENHYDRAMINE HYDROCHLORIDE [Concomitant]
     Active Substance: DIPHENHYDRAMINE HYDROCHLORIDE
  23. CETIRIZINE HYDROCHLORIDE [Concomitant]
     Active Substance: CETIRIZINE HYDROCHLORIDE

REACTIONS (9)
  - Confusional state [Unknown]
  - Illness [Unknown]
  - Stress [Unknown]
  - Product use in unapproved indication [Unknown]
  - Inappropriate schedule of product administration [Unknown]
  - Dermatitis contact [Unknown]
  - Product use issue [Unknown]
  - Insurance issue [Unknown]
  - Headache [Unknown]

NARRATIVE: CASE EVENT DATE: 20240321
